FAERS Safety Report 7214114-4 (Version None)
Quarter: 2010Q4

REPORT INFORMATION
  Report Type: 
  Country: None (occurrence: None)
  Receive Date: 20101126
  Receipt Date: 20100830
  Transmission Date: 20110411
  Serious: Yes (Disabling, Other)
  Sender: FDA-Public Use
  Company Number: WAES 1008USA04055

PATIENT
  Age: 62 Year
  Sex: Female

DRUGS (19)
  1. FOSAMAX [Suspect]
     Indication: OSTEOPOROSIS
     Dosage: 70 MG/WKY/PO
     Route: 048
  2. ZOMETA [Suspect]
     Dosage: MTH/IV
     Route: 042
  3. AMBIEN [Concomitant]
  4. COUMADIN [Concomitant]
  5. DULCOLAX [Concomitant]
  6. EFFEXOR XR [Concomitant]
  7. NEURONTIN [Concomitant]
  8. ONSOLIS [Concomitant]
  9. OS-CAL + D [Concomitant]
  10. PRILOSEC [Concomitant]
  11. REVLIMID [Concomitant]
  12. CITALOPRAM [Concomitant]
  13. DEXAMETHASONE [Concomitant]
  14. FENTANYL [Concomitant]
  15. IRON (UNSPECIFIED) [Concomitant]
  16. OXYCODONE [Concomitant]
  17. PANTOPRAZOLE [Concomitant]
  18. PROMETHAZINE [Concomitant]
  19. THIOCTIC ACID [Concomitant]

REACTIONS (1)
  - OSTEONECROSIS [None]
